FAERS Safety Report 12957250 (Version 1)
Quarter: 2016Q4

REPORT INFORMATION
  Report Type: Report from Study
  Country: CA (occurrence: CA)
  Receive Date: 20161118
  Receipt Date: 20161118
  Transmission Date: 20170207
  Serious: Yes (Congenital Anomaly, Other)
  Sender: FDA-Public Use
  Company Number: CA-BAYER-2016-218102

PATIENT

DRUGS (7)
  1. FLUTICASONE NOT GIVEN [Suspect]
     Active Substance: FLUTICASONE\FLUTICASONE PROPIONATE
  2. SULFASALAZINE. [Concomitant]
     Active Substance: SULFASALAZINE
     Dosage: UNK
     Route: 064
  3. TRIAMCINOLONE [Suspect]
     Active Substance: TRIAMCINOLONE
     Dosage: UNK
     Route: 064
  4. PREDNISONE. [Concomitant]
     Active Substance: PREDNISONE
     Dosage: UNK
     Route: 064
  5. CALCIUM CARBONATE. [Suspect]
     Active Substance: CALCIUM CARBONATE
     Dosage: UNK
     Route: 064
  6. ROFECOXIB [Concomitant]
     Active Substance: ROFECOXIB
     Dosage: UNK
     Route: 064
  7. AMINOSALICYLIC ACID [Concomitant]
     Active Substance: AMINOSALICYLIC ACID
     Dosage: UNK
     Route: 064

REACTIONS (3)
  - Respiratory disorder neonatal [None]
  - Respiratory tract malformation [None]
  - Foetal exposure timing unspecified [None]
